FAERS Safety Report 4889707-X (Version None)
Quarter: 2006Q1

REPORT INFORMATION
  Report Type: 
  Country: None (occurrence: None)
  Receive Date: 20060124
  Receipt Date: 20051213
  Transmission Date: 20060701
  Serious: Yes (Hospitalization)
  Sender: FDA-Public Use
  Company Number: PHEH2005US13433

PATIENT
  Age: 91 Year
  Sex: Male

DRUGS (2)
  1. GLEEVEC [Suspect]
     Indication: KAPOSI'S SARCOMA
     Dosage: 400 MG, QD
     Route: 048
     Dates: start: 20050901, end: 20051101
  2. GLEEVEC [Suspect]
     Dosage: 100 MG, QD
     Route: 048
     Dates: end: 20050901

REACTIONS (13)
  - ABDOMINAL PAIN UPPER [None]
  - ANOREXIA [None]
  - ASTHENIA [None]
  - CONSTIPATION [None]
  - DIZZINESS [None]
  - FALL [None]
  - HEADACHE [None]
  - LOSS OF CONSCIOUSNESS [None]
  - MUSCLE SWELLING [None]
  - NAUSEA [None]
  - RASH GENERALISED [None]
  - VOMITING [None]
  - WEIGHT INCREASED [None]
